FAERS Safety Report 24735831 (Version 10)
Quarter: 2025Q4

REPORT INFORMATION
  Report Type: Spontaneous
  Country: GB (occurrence: GB)
  Receive Date: 20241216
  Receipt Date: 20251229
  Transmission Date: 20260118
  Serious: Yes (Hospitalization)
  Sender: AMGEN
  Company Number: GB-Vifor (International) Inc.-2024187268

PATIENT
  Age: 73 Year
  Sex: Female
  Weight: 74 kg

DRUGS (11)
  1. TAVNEOS [Suspect]
     Active Substance: AVACOPAN
     Indication: Anti-neutrophil cytoplasmic antibody positive vasculitis
     Dosage: RESULTS OF TESTS AND PROCEDURES RELEVANT TO THE INVESTIGATION OF THE PATIENT
     Route: 048
     Dates: start: 20240816, end: 20250815
  2. RITUXIMAB [Concomitant]
     Active Substance: RITUXIMAB
     Indication: Anti-neutrophil cytoplasmic antibody positive vasculitis
     Dosage: 1000 MG, SINGLE IV INFUSION, COMPLETION OF PLANNED COURSE
     Route: 040
     Dates: start: 20240816, end: 20240816
  3. RITUXIMAB [Concomitant]
     Active Substance: RITUXIMAB
     Dosage: 1000 MG, SINGLE IV INFUSION, COMPLETION OF PLANNED COURSE
     Route: 040
     Dates: start: 20240903, end: 20240903
  4. METHYLPREDNISOLONE [Concomitant]
     Active Substance: METHYLPREDNISOLONE
     Indication: Anti-neutrophil cytoplasmic antibody positive vasculitis
     Dosage: 500 MG, QD, COMPLETION OF PLANNED COURSE
     Route: 040
     Dates: start: 20240726, end: 20240728
  5. PREDNISOLONE [Concomitant]
     Active Substance: PREDNISOLONE
     Indication: Anti-neutrophil cytoplasmic antibody positive vasculitis
     Dosage: 60 MG, QD, COMPLETION OF PLANNED COURSE
     Route: 048
     Dates: start: 20240729, end: 20240729
  6. PREDNISOLONE [Concomitant]
     Active Substance: PREDNISOLONE
     Dosage: 40 MG, QD, COMPLETION OF PLANNED COURSE
     Route: 048
     Dates: start: 20240730, end: 20240815
  7. PREDNISOLONE [Concomitant]
     Active Substance: PREDNISOLONE
     Dosage: 20 MG, QD, COMPLETION OF PLANNED COURSE
     Route: 048
     Dates: start: 20240816, end: 20240822
  8. PREDNISOLONE [Concomitant]
     Active Substance: PREDNISOLONE
     Dosage: 15 MG, QD, COMPLETION OF PLANNED COURSE
     Route: 048
     Dates: start: 20240823, end: 20240823
  9. PREDNISOLONE [Concomitant]
     Active Substance: PREDNISOLONE
     Dosage: 10 MG, QD, COMPLETION OF PLANNED COURSE
     Route: 048
     Dates: start: 20240830, end: 20240905
  10. PREDNISOLONE [Concomitant]
     Active Substance: PREDNISOLONE
     Dosage: 5 MG, QD, COMPLETION OF PLANNED COURSE
     Route: 048
     Dates: start: 20240906, end: 20240913
  11. PREDNISOLONE [Concomitant]
     Active Substance: PREDNISOLONE
     Dosage: 2.5 MG, QD, COMPLETION OF PLANNED COURSE
     Route: 048
     Dates: start: 20240913, end: 20240920

REACTIONS (5)
  - Interstitial lung disease [Recovered/Resolved]
  - Dyspnoea [Not Recovered/Not Resolved]
  - Diabetic neuropathy [Not Recovered/Not Resolved]
  - Muscular weakness [Not Recovered/Not Resolved]
  - Tremor [Not Recovered/Not Resolved]

NARRATIVE: CASE EVENT DATE: 20241006
